FAERS Safety Report 12580369 (Version 3)
Quarter: 2016Q3

REPORT INFORMATION
  Report Type: Spontaneous
  Country: US (occurrence: US)
  Receive Date: 20160721
  Receipt Date: 20160902
  Transmission Date: 20161109
  Serious: No
  Sender: FDA-Public Use
  Company Number: US-TOLMAR INC.-1055371

PATIENT
  Age: 58 Year
  Sex: Female

DRUGS (1)
  1. KETOCONAZOLE SHAMPOO, 2% [Suspect]
     Active Substance: KETOCONAZOLE
     Route: 061
     Dates: start: 201602

REACTIONS (9)
  - Excoriation [Recovering/Resolving]
  - Burning sensation [Recovering/Resolving]
  - Headache [Not Recovered/Not Resolved]
  - Erythema [Recovering/Resolving]
  - Depressed mood [Not Recovered/Not Resolved]
  - Impaired healing [Not Recovered/Not Resolved]
  - Pain [Not Recovered/Not Resolved]
  - Swelling face [Recovering/Resolving]
  - Alopecia [Not Recovered/Not Resolved]

NARRATIVE: CASE EVENT DATE: 201602
